FAERS Safety Report 8548327-6 (Version None)
Quarter: 2012Q3

REPORT INFORMATION
  Report Type: 
  Country: None (occurrence: None)
  Receive Date: 20120730
  Receipt Date: 20120720
  Transmission Date: 20120928
  Serious: Yes (Hospitalization)
  Sender: FDA-Public Use
  Company Number: GB-JNJFOC-20120710472

PATIENT
  Sex: Male
  Weight: 97 kg

DRUGS (5)
  1. GONADORELIN INJ [Suspect]
     Indication: PROSTATE CANCER
     Route: 030
     Dates: start: 20111007
  2. TAMSULOSIN HCL [Concomitant]
     Route: 048
  3. INDAPAMIDE [Concomitant]
     Route: 048
  4. SIMVASTATIN [Concomitant]
     Route: 048
  5. ABIRATERONE ACETATE [Suspect]
     Indication: PROSTATE CANCER
     Dosage: CYCLE 8
     Route: 048
     Dates: start: 20111230, end: 20120718

REACTIONS (2)
  - RENAL IMPAIRMENT [None]
  - BLOOD POTASSIUM INCREASED [None]
